FAERS Safety Report 14656449 (Version 1)
Quarter: 2018Q1

REPORT INFORMATION
  Report Type: Report from Study
  Country: US (occurrence: US)
  Receive Date: 20180319
  Receipt Date: 20180319
  Transmission Date: 20180509
  Serious: No
  Sender: FDA-Public Use
  Company Number: PHEH2018US010661

PATIENT
  Age: 11 Year
  Sex: Male

DRUGS (1)
  1. OMNITROPE [Suspect]
     Active Substance: SOMATROPIN
     Indication: PRODUCT USED FOR UNKNOWN INDICATION
     Dosage: 1.1 MG, QD
     Route: 058
     Dates: start: 20180306, end: 20180306

REACTIONS (2)
  - Medication error [Unknown]
  - Headache [Unknown]

NARRATIVE: CASE EVENT DATE: 20180306
